FAERS Safety Report 8057475-9 (Version None)
Quarter: 2012Q1

REPORT INFORMATION
  Report Type: 
  Country: None (occurrence: None)
  Receive Date: 20120119
  Receipt Date: 20120117
  Transmission Date: 20120608
  Serious: Yes (Hospitalization, Other)
  Sender: FDA-Public Use
  Company Number: US-MERCK-1109USA00864

PATIENT
  Age: 71 Year
  Sex: Female
  Weight: 82 kg

DRUGS (1)
  1. FOSAMAX [Suspect]
     Indication: OSTEOPOROSIS
     Route: 048
     Dates: start: 20050101, end: 20101201

REACTIONS (64)
  - ARTHROPATHY [None]
  - TYPE 2 DIABETES MELLITUS [None]
  - ATRIAL FIBRILLATION [None]
  - GASTROOESOPHAGEAL REFLUX DISEASE [None]
  - TACHYPNOEA [None]
  - UPPER-AIRWAY COUGH SYNDROME [None]
  - IRRITABLE BOWEL SYNDROME [None]
  - BLOOD PRESSURE SYSTOLIC INCREASED [None]
  - DYSPNOEA [None]
  - CYST [None]
  - GLUCOSE TOLERANCE IMPAIRED [None]
  - DYSPNOEA EXERTIONAL [None]
  - BLOOD CHOLESTEROL INCREASED [None]
  - RIB FRACTURE [None]
  - CHRONIC OBSTRUCTIVE PULMONARY DISEASE [None]
  - URINARY INCONTINENCE [None]
  - ARTHRALGIA [None]
  - HYPOTHYROIDISM [None]
  - FALL [None]
  - CONSTIPATION [None]
  - HYPERLIPIDAEMIA [None]
  - DYSPHONIA [None]
  - SKIN LESION [None]
  - SINUS CONGESTION [None]
  - BURSITIS [None]
  - MUSCLE SPASMS [None]
  - COUGH [None]
  - HYPEROSMOLAR STATE [None]
  - GALLBLADDER DISORDER [None]
  - HEPATIC LESION [None]
  - HYPERKERATOSIS [None]
  - TACHYCARDIA [None]
  - SEBORRHOEIC KERATOSIS [None]
  - PAIN IN EXTREMITY [None]
  - SLEEP APNOEA SYNDROME [None]
  - OBESITY [None]
  - NOCTURIA [None]
  - RENAL FAILURE ACUTE [None]
  - DIARRHOEA [None]
  - MUSCLE STRAIN [None]
  - WHEEZING [None]
  - VARICOSE VEIN [None]
  - BACK PAIN [None]
  - DEPRESSION [None]
  - BRONCHITIS [None]
  - DYSLIPIDAEMIA [None]
  - FATIGUE [None]
  - HEADACHE [None]
  - OEDEMA PERIPHERAL [None]
  - DYSPHAGIA [None]
  - RESTLESS LEGS SYNDROME [None]
  - HYPONATRAEMIA [None]
  - FEMUR FRACTURE [None]
  - ANXIETY [None]
  - UTERINE DISORDER [None]
  - ANAEMIA OF CHRONIC DISEASE [None]
  - CATARACT [None]
  - HYPERSENSITIVITY [None]
  - HYPERTENSION [None]
  - OSTEOARTHRITIS [None]
  - HYPOAESTHESIA [None]
  - NEUROPATHY PERIPHERAL [None]
  - RADICULOPATHY [None]
  - JOINT SWELLING [None]
